FAERS Safety Report 18665882 (Version 1)
Quarter: 2020Q4

REPORT INFORMATION
  Report Type: Spontaneous
  Country: GB (occurrence: GB)
  Receive Date: 20201226
  Receipt Date: 20201226
  Transmission Date: 20210114
  Serious: Yes (Life-Threatening, Hospitalization)
  Sender: FDA-Public Use
  Company Number: GB-ACCORD-212397

PATIENT
  Age: 38 Year
  Sex: Female

DRUGS (6)
  1. OMEPRAZOLE. [Concomitant]
     Active Substance: OMEPRAZOLE
  2. DIAZEPAM. [Concomitant]
     Active Substance: DIAZEPAM
  3. AMITRIPTYLINE [Suspect]
     Active Substance: AMITRIPTYLINE
     Indication: NEURALGIA
     Route: 048
     Dates: start: 20201201, end: 20201208
  4. SERTRALINE [Concomitant]
     Active Substance: SERTRALINE HYDROCHLORIDE
  5. PARACETAMOL [Concomitant]
     Active Substance: ACETAMINOPHEN
  6. NAPROSYN [Concomitant]
     Active Substance: NAPROXEN

REACTIONS (5)
  - Tachycardia [Unknown]
  - Dyspnoea [Unknown]
  - Pain in extremity [Unknown]
  - Pulmonary embolism [Recovering/Resolving]
  - Crying [Unknown]

NARRATIVE: CASE EVENT DATE: 20201205
